FAERS Safety Report 16495114 (Version 1)
Quarter: 2019Q2

REPORT INFORMATION
  Report Type: Spontaneous
  Country: GB (occurrence: GB)
  Receive Date: 20190628
  Receipt Date: 20190628
  Transmission Date: 20190711
  Serious: Yes (Life-Threatening, Other)
  Sender: FDA-Public Use
  Company Number: GB-NOVOPROD-669284

PATIENT
  Age: 68 Year
  Sex: Female
  Weight: 107 kg

DRUGS (4)
  1. OZEMPIC [Suspect]
     Active Substance: SEMAGLUTIDE
     Indication: PRODUCT USED FOR UNKNOWN INDICATION
     Dosage: 0.5 MG, QW(0.5MG/0.37ML SOLUTION FOR INJECTION 1.5ML PRE-FILLED)
     Route: 065
     Dates: start: 20190404
  2. METFORMIN [Concomitant]
     Active Substance: METFORMIN HYDROCHLORIDE
     Dosage: 1000 MG, QD (ONE TO BE TAKEN TWICE A DAY)
     Dates: start: 20190228
  3. INDAPAMIDE. [Concomitant]
     Active Substance: INDAPAMIDE
     Dosage: 2.5 MG, QD (1 TABLET ONCE A DAY)
     Route: 065
     Dates: start: 20190308
  4. GLICLAZIDE [Concomitant]
     Active Substance: GLICLAZIDE
     Dosage: 30 MG, QD (1 TABLET A DAY)
     Dates: start: 20190308

REACTIONS (3)
  - Paraesthesia oral [Unknown]
  - Hypersensitivity [Recovered/Resolved]
  - Swollen tongue [Unknown]

NARRATIVE: CASE EVENT DATE: 20190411
